FAERS Safety Report 4548243-0 (Version None)
Quarter: 2005Q1

REPORT INFORMATION
  Report Type: 
  Country: None (occurrence: None)
  Receive Date: 20050105
  Receipt Date: 20050105
  Transmission Date: 20050727
  Serious: Yes (Other)
  Sender: FDA-Public Use
  Company Number: None

PATIENT
  Age: 74 Year
  Sex: Female
  Weight: 70.7611 kg

DRUGS (4)
  1. HALFLYTELY [Suspect]
     Dosage: SINGLE DOSE (2L)
     Dates: start: 20041228
  2. THYROID TAB [Concomitant]
  3. ZYRTEC [Concomitant]
  4. ASPIRIN [Concomitant]

REACTIONS (4)
  - ABDOMINAL PAIN [None]
  - COLITIS ISCHAEMIC [None]
  - RECTAL HAEMORRHAGE [None]
  - VOMITING [None]
